FAERS Safety Report 12872548 (Version 1)
Quarter: 2016Q4

REPORT INFORMATION
  Report Type: Spontaneous
  Country: US (occurrence: US)
  Receive Date: 20161021
  Receipt Date: 20161021
  Transmission Date: 20170207
  Serious: No
  Sender: FDA-Public Use
  Company Number: US-PFIZER INC-2016ANA00087

PATIENT
  Age: 31 Year
  Sex: Female
  Weight: 72.56 kg

DRUGS (3)
  1. PRENATAL VITAMINS /02014401/ [Concomitant]
     Active Substance: VITAMINS
     Dosage: UNK, 1X/DAY
  2. DICLEGIS [Concomitant]
     Active Substance: DOXYLAMINE SUCCINATE\PYRIDOXINE HYDROCHLORIDE
     Dosage: UNK, AS NEEDED
  3. KERYDIN [Suspect]
     Active Substance: TAVABOROLE
     Indication: FUNGAL INFECTION
     Dosage: 1 DOSAGE UNITS, EVERY 48 HOURS
     Route: 061
     Dates: start: 20151203, end: 20160205

REACTIONS (3)
  - Product use issue [Unknown]
  - Nausea [Recovered/Resolved]
  - Vomiting [Recovered/Resolved]

NARRATIVE: CASE EVENT DATE: 20160205
